FAERS Safety Report 18509749 (Version 3)
Quarter: 2021Q1

REPORT INFORMATION
  Report Type: Spontaneous
  Country: JP (occurrence: JP)
  Receive Date: 20201117
  Receipt Date: 20210205
  Transmission Date: 20210419
  Serious: Yes (Death, Other)
  Sender: FDA-Public Use
  Company Number: JP-GLAXOSMITHKLINE-JP2020225174

PATIENT
  Sex: Male
  Weight: 54 kg

DRUGS (77)
  1. MEPOLIZUMAB [Suspect]
     Active Substance: MEPOLIZUMAB
     Dosage: 300 MG
     Route: 058
     Dates: start: 20190606, end: 20190606
  2. BENAMBAX INHALATION [Concomitant]
     Indication: ANTIFUNGAL PROPHYLAXIS
  3. ANTEBATE OINTMENT [Concomitant]
     Active Substance: BETAMETHASONE BUTYRATE PROPIONATE
     Indication: ERYTHEMA
  4. NOBELZIN TABLETS [Concomitant]
  5. SHIGMABITAN COMBINATION CAPSULES [Concomitant]
  6. MEPOLIZUMAB [Suspect]
     Active Substance: MEPOLIZUMAB
     Dosage: 300 MG
     Route: 058
     Dates: start: 20181018, end: 20181018
  7. MEPOLIZUMAB [Suspect]
     Active Substance: MEPOLIZUMAB
     Dosage: 300 MG
     Route: 058
     Dates: start: 20181129, end: 20181129
  8. MEPOLIZUMAB [Suspect]
     Active Substance: MEPOLIZUMAB
     Dosage: 300 MG
     Route: 058
     Dates: start: 20190509, end: 20190509
  9. MEPOLIZUMAB [Suspect]
     Active Substance: MEPOLIZUMAB
     Dosage: 300 MG
     Route: 058
     Dates: start: 20200702, end: 20200702
  10. PREDONINE [Concomitant]
     Active Substance: PREDNISOLONE
     Dosage: 15 MG
     Route: 048
     Dates: start: 20180907, end: 20180920
  11. PREDNISOLONE TABLETS [Concomitant]
     Active Substance: PREDNISOLONE
     Indication: EOSINOPHILIC GRANULOMATOSIS WITH POLYANGIITIS
     Dosage: 2 MG
     Route: 048
     Dates: start: 20181115
  12. AMLODIN OD TABLETS [Concomitant]
  13. RINDERON?VG OINTMENT [Concomitant]
     Indication: ECZEMA ASTEATOTIC
     Dosage: 5 G, SINGLE
     Dates: start: 20200630, end: 20200630
  14. FUROSEMIDE TABLETS [Concomitant]
     Active Substance: FUROSEMIDE
  15. MEPOLIZUMAB [Suspect]
     Active Substance: MEPOLIZUMAB
     Dosage: 300 MG
     Route: 058
     Dates: start: 20200507, end: 20200507
  16. PREDONINE [Concomitant]
     Active Substance: PREDNISOLONE
     Dosage: 17.5 MG
     Route: 048
     Dates: start: 20180831, end: 20180906
  17. MERCAZOLE TABLETS [Concomitant]
  18. HARNAL D TABLETS [Concomitant]
  19. NESP INJECTION PLASTIC SYRINGE [Concomitant]
  20. HEPARINOID OIL?BASED CREAM 0.3% [Concomitant]
     Indication: EOSINOPHILIC GRANULOMATOSIS WITH POLYANGIITIS
  21. LOXONIN TABLETS [Concomitant]
     Active Substance: LOXOPROFEN SODIUM
     Indication: EOSINOPHILIC GRANULOMATOSIS WITH POLYANGIITIS
  22. SODIUM PICOSULFATE [Concomitant]
     Active Substance: SODIUM PICOSULFATE
  23. MOVICOL [Concomitant]
     Active Substance: POLYETHYLENE GLYCOL 3350\POTASSIUM CHLORIDE\SODIUM BICARBONATE\SODIUM CHLORIDE
  24. DARBEPOETIN ALFA (GENETICAL RECOMBINATION) [Concomitant]
  25. MEPOLIZUMAB [Suspect]
     Active Substance: MEPOLIZUMAB
     Dosage: 300 MG
     Route: 058
     Dates: start: 20181101, end: 20181101
  26. MEPOLIZUMAB [Suspect]
     Active Substance: MEPOLIZUMAB
     Dosage: 300 MG
     Route: 058
     Dates: start: 20190207, end: 20190207
  27. MEPOLIZUMAB [Suspect]
     Active Substance: MEPOLIZUMAB
     Dosage: 300 MG
     Route: 058
     Dates: start: 20200409, end: 20200409
  28. MEPOLIZUMAB [Suspect]
     Active Substance: MEPOLIZUMAB
     Dosage: 300 MG
     Route: 058
     Dates: start: 20200901, end: 20200901
  29. FLUITRAN TABLET [Concomitant]
  30. CLOPIDOGREL SULFATE TABLETS [Concomitant]
     Indication: THROMBOSIS PROPHYLAXIS
  31. MEPOLIZUMAB [Suspect]
     Active Substance: MEPOLIZUMAB
     Dosage: 300 MG
     Route: 058
     Dates: start: 20190110, end: 20190110
  32. MEPOLIZUMAB [Suspect]
     Active Substance: MEPOLIZUMAB
     Dosage: 300 MG
     Route: 058
     Dates: start: 20190801, end: 20190801
  33. MEPOLIZUMAB [Suspect]
     Active Substance: MEPOLIZUMAB
     Dosage: 300 MG
     Route: 058
     Dates: start: 20190829, end: 20190829
  34. MEPOLIZUMAB [Suspect]
     Active Substance: MEPOLIZUMAB
     Dosage: 300 MG
     Route: 058
     Dates: start: 20200116, end: 20200116
  35. MEPOLIZUMAB [Suspect]
     Active Substance: MEPOLIZUMAB
     Dosage: 300 MG
     Route: 058
     Dates: start: 20200806, end: 20200806
  36. PREDONINE [Concomitant]
     Active Substance: PREDNISOLONE
     Dosage: 12.5 MG
     Route: 048
     Dates: start: 20180921, end: 20181114
  37. PREDONINE [Concomitant]
     Active Substance: PREDNISOLONE
     Dosage: 10 MG
     Route: 048
     Dates: start: 20181115
  38. TSUMURA SHAKUYAKUKANZOTO EXTRACT GRANULES [Concomitant]
  39. FOSRENOL OD TABLET [Concomitant]
  40. RINDERON?VG LOTION [Concomitant]
     Indication: ECZEMA ASTEATOTIC
     Dosage: UNK UNK, 1D
     Dates: start: 20191106, end: 20200604
  41. OXAROL [Concomitant]
     Active Substance: MAXACALCITOL
  42. MEPOLIZUMAB [Suspect]
     Active Substance: MEPOLIZUMAB
     Dosage: 300 MG
     Route: 058
     Dates: start: 20190307, end: 20190307
  43. MEPOLIZUMAB [Suspect]
     Active Substance: MEPOLIZUMAB
     Dosage: 300 MG
     Route: 058
     Dates: start: 20190404, end: 20190404
  44. MEPOLIZUMAB [Suspect]
     Active Substance: MEPOLIZUMAB
     Dosage: 300 MG
     Route: 058
     Dates: start: 20190704, end: 20190704
  45. MEPOLIZUMAB [Suspect]
     Active Substance: MEPOLIZUMAB
     Dosage: 300 MG
     Route: 058
     Dates: start: 20191024, end: 20191024
  46. MEPOLIZUMAB [Suspect]
     Active Substance: MEPOLIZUMAB
     Dosage: 300 MG
     Route: 058
     Dates: start: 20191219, end: 20191219
  47. MEPOLIZUMAB [Suspect]
     Active Substance: MEPOLIZUMAB
     Dosage: 300 MG
     Route: 058
     Dates: start: 20200213, end: 20200213
  48. MEPOLIZUMAB [Suspect]
     Active Substance: MEPOLIZUMAB
     Dosage: 300 MG
     Route: 058
     Dates: start: 20200604, end: 20200604
  49. PREDONINE [Concomitant]
     Active Substance: PREDNISOLONE
     Indication: EOSINOPHILIC GRANULOMATOSIS WITH POLYANGIITIS
     Dosage: 30 MG
     Route: 048
     Dates: start: 20180728, end: 20180816
  50. PREDONINE [Concomitant]
     Active Substance: PREDNISOLONE
     Dosage: 25 MG
     Route: 048
     Dates: start: 20180817, end: 20180823
  51. PREDONINE [Concomitant]
     Active Substance: PREDNISOLONE
     Dosage: 20 MG
     Route: 048
     Dates: start: 20180824, end: 20180830
  52. HUMALOG PEN [Concomitant]
     Active Substance: INSULIN LISPRO
  53. LANTUS XR SOLOSTAR INJECTION [Concomitant]
  54. BENAMBAX INHALATION [Concomitant]
     Indication: ANTIFUNGAL PROPHYLAXIS
     Route: 055
  55. LASIX [Concomitant]
     Active Substance: FUROSEMIDE
  56. LOXONIN TAPE [Concomitant]
     Active Substance: LOXOPROFEN SODIUM DIHYDRATE
  57. REBAMIPIDE TABLETS [Concomitant]
     Indication: EOSINOPHILIC GRANULOMATOSIS WITH POLYANGIITIS
  58. ANTEBATE OINTMENT [Concomitant]
     Active Substance: BETAMETHASONE BUTYRATE PROPIONATE
     Indication: PRURITUS
     Dosage: UNK UNK, 1D
     Dates: start: 20191106, end: 20200604
  59. ATORVASTATIN CALCIUM. [Concomitant]
     Active Substance: ATORVASTATIN CALCIUM
  60. MEPOLIZUMAB [Suspect]
     Active Substance: MEPOLIZUMAB
     Dosage: 300 MG
     Route: 058
     Dates: start: 20191121, end: 20191121
  61. MEPOLIZUMAB [Suspect]
     Active Substance: MEPOLIZUMAB
     Dosage: 300 MG
     Route: 058
     Dates: start: 20201002, end: 20201002
  62. AZILVA TABLETS [Concomitant]
  63. BAYASPIRIN TABLETS [Concomitant]
     Indication: THROMBOSIS PROPHYLAXIS
  64. FEBURIC TABLETS [Concomitant]
     Active Substance: FEBUXOSTAT
  65. CLOPIDOGREL SULFATE TABLETS [Concomitant]
     Indication: EMBOLISM
  66. AMITIZA CAPSULE [Concomitant]
  67. MEPOLIZUMAB [Suspect]
     Active Substance: MEPOLIZUMAB
     Indication: EOSINOPHILIC GRANULOMATOSIS WITH POLYANGIITIS
     Dosage: 300 MG
     Route: 058
     Dates: start: 20180821, end: 20180821
  68. MEPOLIZUMAB [Suspect]
     Active Substance: MEPOLIZUMAB
     Dosage: 300 MG
     Route: 058
     Dates: start: 20180918, end: 20180918
  69. MEPOLIZUMAB [Suspect]
     Active Substance: MEPOLIZUMAB
     Dosage: 300 MG
     Route: 058
     Dates: start: 20181213, end: 20181213
  70. MEPOLIZUMAB [Suspect]
     Active Substance: MEPOLIZUMAB
     Dosage: 300 MG
     Route: 058
     Dates: start: 20190926, end: 20190926
  71. MEPOLIZUMAB [Suspect]
     Active Substance: MEPOLIZUMAB
     Dosage: 300 MG
     Route: 058
     Dates: start: 20200312, end: 20200312
  72. LANSOPRAZOLE?OD TABLETS [Concomitant]
  73. LAXOBERON TABLET [Concomitant]
  74. SUMILU STICK [Concomitant]
     Active Substance: FELBINAC
  75. GOOFICE TABLET [Concomitant]
     Indication: EOSINOPHILIC GRANULOMATOSIS WITH POLYANGIITIS
  76. LUNESTA TABLETS [Concomitant]
  77. ETHYL ICOSAPENTATE GRANULAR CAPSULE [Concomitant]
     Indication: THROMBOSIS PROPHYLAXIS

REACTIONS (2)
  - Sepsis [Fatal]
  - Chronic kidney disease [Fatal]
